FAERS Safety Report 17291500 (Version 1)
Quarter: 2020Q1

REPORT INFORMATION
  Report Type: Report from Study
  Country: CA (occurrence: CA)
  Receive Date: 20200121
  Receipt Date: 20200121
  Transmission Date: 20200409
  Serious: Yes (Other)
  Sender: FDA-Public Use
  Company Number: CA-BAYER-2019-056076

PATIENT
  Age: 59 Year
  Sex: Male

DRUGS (1)
  1. NEXAVAR [Suspect]
     Active Substance: SORAFENIB
     Indication: DESMOID TUMOUR
     Dosage: 400MG DAILY

REACTIONS (4)
  - Product use in unapproved indication [Not Recovered/Not Resolved]
  - Off label use [Not Recovered/Not Resolved]
  - Tumour pain [Recovered/Resolved]
  - Adverse drug reaction [None]
